FAERS Safety Report 9182271 (Version 1)
Quarter: 2013Q1

REPORT INFORMATION
  Report Type: Spontaneous
  Country: US (occurrence: None)
  Receive Date: 20120626
  Receipt Date: 20120626
  Transmission Date: 20140127
  Serious: Yes (Other)
  Sender: FDA-Public Use
  Company Number: PHEH2011US011035

PATIENT
  Age: 73 Year
  Sex: Female

DRUGS (5)
  1. DIOVAN HCT [Suspect]
     Dates: start: 2008
  2. VERAPAMIL [Suspect]
     Dates: start: 2008
  3. PREMARIN (ESTROGENS CONJUGATED) [Concomitant]
  4. LISINOPRIL + HYDROCHLOROTHIAZIDE [Suspect]
     Dates: start: 2008, end: 2009
  5. CARVEDILOL\HYDROCHLOROTHIAZIDE [Suspect]
     Dates: start: 2008

REACTIONS (2)
  - Hypertension [None]
  - Drug ineffective [None]
